FAERS Safety Report 23506570 (Version 1)
Quarter: 2024Q1

REPORT INFORMATION
  Report Type: Spontaneous
  Country: US (occurrence: US)
  Receive Date: 20240209
  Receipt Date: 20240209
  Transmission Date: 20240410
  Serious: No
  Sender: FDA-Public Use
  Company Number: US-ASTELLAS-2023US036491

PATIENT
  Age: 77 Year
  Sex: Female

DRUGS (5)
  1. IZERVAY [Suspect]
     Active Substance: AVACINCAPTAD PEGOL SODIUM
     Indication: Product used for unknown indication
     Dosage: UNK UNK, UNKNOWN FREQ. (INJECTION) LEFT EYE (OS)
     Route: 065
     Dates: start: 20231129
  2. IZERVAY [Suspect]
     Active Substance: AVACINCAPTAD PEGOL SODIUM
     Indication: Product used for unknown indication
     Dosage: UNK UNK, UNKNOWN FREQ. (INJECTION) LEFT EYE (OS)
     Route: 065
     Dates: start: 20231129
  3. IZERVAY [Suspect]
     Active Substance: AVACINCAPTAD PEGOL SODIUM
     Indication: Product used for unknown indication
     Dosage: UNK UNK, UNKNOWN FREQ. (INJECTION) LEFT EYE (OS)
     Route: 065
     Dates: start: 20231129
  4. IZERVAY [Suspect]
     Active Substance: AVACINCAPTAD PEGOL SODIUM
     Indication: Product used for unknown indication
     Dosage: UNK UNK, UNKNOWN FREQ. (INJECTION) LEFT EYE (OS)
     Route: 065
     Dates: start: 20231129
  5. IZERVAY [Suspect]
     Active Substance: AVACINCAPTAD PEGOL SODIUM
     Indication: Product used for unknown indication
     Dosage: UNK UNK, UNKNOWN FREQ. (INJECTION) LEFT EYE (OS)
     Route: 065
     Dates: start: 20231129

REACTIONS (1)
  - Eye inflammation [Recovering/Resolving]

NARRATIVE: CASE EVENT DATE: 20231130
